FAERS Safety Report 7735575-8 (Version None)
Quarter: 2011Q3

REPORT INFORMATION
  Report Type: 
  Country: None (occurrence: None)
  Receive Date: 20110907
  Receipt Date: 20110823
  Transmission Date: 20111222
  Serious: Yes (Hospitalization)
  Sender: FDA-Public Use
  Company Number: AU-B.I. PHARMACEUTICALS,INC./RIDGEFIELD-2011-AU-01154AU

PATIENT
  Sex: Female
  Weight: 71 kg

DRUGS (9)
  1. FELODUR [Concomitant]
  2. PANTOPRAZOLE [Concomitant]
  3. FUROSEMIDE [Concomitant]
  4. METFORMIN HCL [Concomitant]
     Dosage: 1000 MG
  5. SPIRONOLACTONE [Concomitant]
  6. ATORVASTATIN [Concomitant]
  7. ATENOLOL [Concomitant]
  8. PRADAXA [Suspect]
     Indication: ATRIAL FIBRILLATION
     Dosage: 220 MG
     Dates: end: 20110816
  9. MONODUR [Concomitant]

REACTIONS (2)
  - GASTROINTESTINAL HAEMORRHAGE [None]
  - RENAL IMPAIRMENT [None]
